FAERS Safety Report 6564723-0 (Version None)
Quarter: 2010Q1

REPORT INFORMATION
  Report Type: 
  Country: None (occurrence: None)
  Receive Date: 20100201
  Receipt Date: 20100121
  Transmission Date: 20100710
  Serious: Yes (Other)
  Sender: FDA-Public Use
  Company Number: JP-ASTRAZENECA-2009SE28400

PATIENT
  Age: 21089 Day
  Sex: Female
  Weight: 40 kg

DRUGS (5)
  1. IRESSA [Suspect]
     Indication: LUNG ADENOCARCINOMA
     Route: 048
     Dates: start: 20080919, end: 20081127
  2. MEDICON [Concomitant]
     Indication: COUGH
     Route: 048
     Dates: start: 20080812
  3. LENDORMIN D [Concomitant]
     Indication: INSOMNIA
     Route: 048
     Dates: start: 20080812
  4. MOBIC [Concomitant]
     Indication: CANCER PAIN
     Route: 048
     Dates: start: 20080828, end: 20090312
  5. GASTER D [Concomitant]
     Indication: GASTRITIS
     Route: 048
     Dates: start: 20080919, end: 20090312

REACTIONS (3)
  - LUNG DISORDER [None]
  - ORGANISING PNEUMONIA [None]
  - RADIATION INJURY [None]
